FAERS Safety Report 5957209-5 (Version None)
Quarter: 2008Q4

REPORT INFORMATION
  Report Type: 
  Country: None (occurrence: None)
  Receive Date: 20081118
  Receipt Date: 20081112
  Transmission Date: 20090506
  Serious: Yes (Hospitalization, Other)
  Sender: FDA-Public Use
  Company Number: US-GENENTECH-240482

PATIENT
  Sex: Female

DRUGS (11)
  1. BEVACIZUMAB [Suspect]
     Indication: BREAST CANCER
     Dosage: 1123 MG, UNK
     Route: 042
     Dates: start: 20070207
  2. ABRAXANE [Suspect]
     Indication: BREAST CANCER
     Dosage: 585 MG, UNK
     Route: 042
     Dates: start: 20070404
  3. CYCLOPHOSPHAMIDE [Suspect]
     Indication: BREAST CANCER
     Dosage: 1368 MG, UNK
     Route: 042
     Dates: start: 20070207
  4. ADRIAMYCIN PFS [Suspect]
     Indication: BREAST CANCER
     Dosage: 137 MG, UNK
     Route: 042
     Dates: start: 20070207
  5. NEULASTA [Suspect]
     Indication: BREAST CANCER
     Dosage: 6 MG, UNK
     Route: 042
     Dates: start: 20070208
  6. MOXIFLOXACIN HCL [Concomitant]
     Indication: SINUSITIS
     Dosage: 400 MG, UNK
     Route: 048
     Dates: start: 20070404, end: 20070416
  7. COMPAZINE [Concomitant]
     Indication: DRUG USE FOR UNKNOWN INDICATION
  8. COUMADIN [Concomitant]
     Indication: DRUG USE FOR UNKNOWN INDICATION
  9. ZANTAC [Concomitant]
     Indication: DRUG USE FOR UNKNOWN INDICATION
  10. MAXZIDE [Concomitant]
     Indication: DRUG USE FOR UNKNOWN INDICATION
  11. ALEVE [Concomitant]
     Indication: DRUG USE FOR UNKNOWN INDICATION

REACTIONS (2)
  - LEUKOCYTOSIS [None]
  - PYREXIA [None]
